FAERS Safety Report 5907604-5 (Version None)
Quarter: 2008Q4

REPORT INFORMATION
  Report Type: 
  Country: None (occurrence: None)
  Receive Date: 20081003
  Receipt Date: 20080929
  Transmission Date: 20090506
  Serious: Yes (Life-Threatening, Hospitalization, Disabling, Other)
  Sender: FDA-Public Use
  Company Number: US-MERCK-0809USA00892

PATIENT
  Age: 46 Year
  Sex: Male
  Weight: 106 kg

DRUGS (3)
  1. VYTORIN [Suspect]
     Indication: HYPERLIPIDAEMIA
     Route: 048
     Dates: start: 20060412, end: 20071228
  2. ZOCOR [Suspect]
     Indication: HYPERLIPIDAEMIA
     Route: 048
     Dates: start: 20071228
  3. CHANTIX [Concomitant]
     Indication: TOBACCO USER
     Route: 048
     Dates: start: 20080707, end: 20080716

REACTIONS (5)
  - ABDOMINAL PAIN UPPER [None]
  - ERUCTATION [None]
  - METASTASES TO LIVER [None]
  - NAUSEA [None]
  - PANCREATIC CARCINOMA METASTATIC [None]
